FAERS Safety Report 6631322-1 (Version None)
Quarter: 2010Q1

REPORT INFORMATION
  Report Type: 
  Country: None (occurrence: None)
  Receive Date: 20100312
  Receipt Date: 20100226
  Transmission Date: 20100710
  Serious: Yes (Other)
  Sender: FDA-Public Use
  Company Number: IT-RANBAXY-2010RR-32175

PATIENT
  Age: 69 Year
  Sex: Female

DRUGS (4)
  1. CLARITHROMYCIN [Suspect]
     Indication: CHRONIC OBSTRUCTIVE PULMONARY DISEASE
     Dosage: 500 MG, BID
  2. BOSENTAN [Suspect]
     Indication: PULMONARY ARTERIAL HYPERTENSION
     Dosage: UNK
     Dates: start: 20031101, end: 20080801
  3. CLARITHROMYCIN [Concomitant]
     Dosage: 250 MG, BID
  4. BOSENTAN [Concomitant]
     Dosage: 125 UNK, BID

REACTIONS (2)
  - DRUG INTERACTION [None]
  - LIVER DISORDER [None]
